FAERS Safety Report 14448211 (Version 1)
Quarter: 2018Q1

REPORT INFORMATION
  Report Type: Spontaneous
  Country: US (occurrence: US)
  Receive Date: 20180126
  Receipt Date: 20180126
  Transmission Date: 20180509
  Serious: Yes (Hospitalization)
  Sender: FDA-Public Use
  Company Number: US-BAYER-2018-014617

PATIENT
  Age: 86 Year
  Sex: Female

DRUGS (2)
  1. BAYER WOMENS [Suspect]
     Active Substance: ASPIRIN\CALCIUM CARBONATE
     Dates: end: 20180121
  2. AFRIN ORIGINAL [Suspect]
     Active Substance: OXYMETAZOLINE HYDROCHLORIDE
     Indication: EPISTAXIS
     Route: 045
     Dates: end: 20180121

REACTIONS (6)
  - Intentional product misuse [None]
  - Atrial fibrillation [Unknown]
  - Pyrexia [Unknown]
  - Altered state of consciousness [Unknown]
  - Epistaxis [Unknown]
  - Product use in unapproved indication [None]

NARRATIVE: CASE EVENT DATE: 20180121
